FAERS Safety Report 9398460 (Version 3)
Quarter: 2013Q3

REPORT INFORMATION
  Report Type: Report from Study
  Country: DE (occurrence: DE)
  Receive Date: 20130712
  Receipt Date: 20130730
  Transmission Date: 20140515
  Serious: Yes (Hospitalization, Other)
  Sender: FDA-Public Use
  Company Number: DE-JNJFOC-20100505051

PATIENT
  Age: 27 Year
  Sex: Female
  Weight: 82 kg

DRUGS (6)
  1. REMICADE [Suspect]
     Indication: COLITIS ULCERATIVE
     Dosage: DOSE, DATES AND FREQUENCY UNSPECIFIED
     Route: 042
     Dates: start: 20090612, end: 20100323
  2. VANCOMYCIN [Concomitant]
     Indication: CLOSTRIDIUM DIFFICILE INFECTION
     Route: 048
     Dates: start: 20100311, end: 20100318
  3. AZATHIOPRINE [Concomitant]
     Indication: COLITIS ULCERATIVE
     Route: 048
     Dates: start: 20070827
  4. PREDNISONE [Concomitant]
     Indication: COLITIS ULCERATIVE
     Route: 048
     Dates: start: 20100413
  5. TILIDIN [Concomitant]
  6. FLUOXETINE [Concomitant]

REACTIONS (5)
  - Eclampsia [Recovered/Resolved]
  - Colitis ulcerative [Unknown]
  - Pseudomembranous colitis [Unknown]
  - Exposure during pregnancy [Recovered/Resolved]
  - Clostridium difficile infection [Recovered/Resolved]
